FAERS Safety Report 25870674 (Version 1)
Quarter: 2025Q4

REPORT INFORMATION
  Report Type: Spontaneous
  Country: BR (occurrence: BR)
  Receive Date: 20251001
  Receipt Date: 20251001
  Transmission Date: 20260119
  Serious: Yes (Other)
  Sender: SANDOZ
  Company Number: BR-002147023-NVSC2025BR151392

PATIENT
  Age: 87 Year
  Sex: Female

DRUGS (7)
  1. FULVESTRANT [Suspect]
     Active Substance: FULVESTRANT
     Indication: Product used for unknown indication
     Dosage: THE FIRST DOSE AT THE BEGINNING OF MONTH
     Route: 065
  2. FULVESTRANT [Suspect]
     Active Substance: FULVESTRANT
     Dosage: TOOK THE SECOND DOSE ON 10-SEP
     Route: 065
  3. RIBOCICLIB [Suspect]
     Active Substance: RIBOCICLIB
     Indication: Breast cancer
     Dosage: UNK CONTINUOUS USE 63 TABLETS FOR THREE  WEEKS
     Route: 065
  4. RIBOCICLIB [Suspect]
     Active Substance: RIBOCICLIB
     Indication: Metastases to bone
  5. ZOMETA [Suspect]
     Active Substance: ZOLEDRONIC ACID
     Indication: Product used for unknown indication
     Dosage: UNK (THE FIRST DOSE, IN FEBRUARY OF THIS  YEAR (2025)
     Route: 065
  6. ZOMETA [Suspect]
     Active Substance: ZOLEDRONIC ACID
     Dosage: UNK (THE SECOND DOSE WAS APPLIED IN  EARLY AUGUST)
     Route: 065
  7. ZOMETA [Suspect]
     Active Substance: ZOLEDRONIC ACID
     Dosage: UNK, Q3MO OTHER APPLY IT EVERY 3  MONTHS
     Route: 065

REACTIONS (4)
  - Metastasis [Unknown]
  - Spinal pain [Unknown]
  - Bone pain [Unknown]
  - Back pain [Unknown]

NARRATIVE: CASE EVENT DATE: 20250101
